FAERS Safety Report 24642379 (Version 1)
Quarter: 2024Q4

REPORT INFORMATION
  Report Type: Spontaneous
  Country: SE (occurrence: SE)
  Receive Date: 20241120
  Receipt Date: 20241120
  Transmission Date: 20250114
  Serious: Yes (Hospitalization)
  Sender: SANDOZ
  Company Number: None

PATIENT
  Age: 80 Year
  Sex: Female

DRUGS (1)
  1. ZIEXTENZO [Suspect]
     Active Substance: PEGFILGRASTIM-BMEZ
     Indication: Granulocytopenia
     Dosage: UNK
     Route: 058

REACTIONS (2)
  - Arteritis [Not Recovered/Not Resolved]
  - Aortitis [Not Recovered/Not Resolved]

NARRATIVE: CASE EVENT DATE: 20241104
